FAERS Safety Report 25864847 (Version 1)
Quarter: 2025Q3

REPORT INFORMATION
  Report Type: Spontaneous
  Country: US (occurrence: US)
  Receive Date: 20250930
  Receipt Date: 20250930
  Transmission Date: 20251021
  Serious: Yes (Hospitalization)
  Sender: SANOFI AVENTIS
  Company Number: US-SA-2025SA287624

PATIENT
  Age: 48 Year
  Sex: Female

DRUGS (17)
  1. REZUROCK [Suspect]
     Active Substance: BELUMOSUDIL
     Indication: Acute lymphocytic leukaemia
     Dosage: 200 MG, QD
     Route: 048
     Dates: start: 202506
  2. ACYCLOVIR [Concomitant]
     Active Substance: ACYCLOVIR
  3. ATORVASTATIN [Concomitant]
     Active Substance: ATORVASTATIN
  4. BACTRIM [Concomitant]
     Active Substance: SULFAMETHOXAZOLE\TRIMETHOPRIM
  5. DULOXETINE [Concomitant]
     Active Substance: DULOXETINE
  6. MELATONIN [Concomitant]
     Active Substance: MELATONIN
  7. OLANZAPINE [Concomitant]
     Active Substance: OLANZAPINE
  8. POSACONAZOLE [Concomitant]
     Active Substance: POSACONAZOLE
  9. PREDNISONE [Concomitant]
     Active Substance: PREDNISONE
  10. TACROLIMUS [Concomitant]
     Active Substance: TACROLIMUS
  11. TRAMADOL [Concomitant]
     Active Substance: TRAMADOL
  12. HERBALS\TURMERIC [Concomitant]
     Active Substance: HERBALS\TURMERIC
  13. URSODIOL [Concomitant]
     Active Substance: URSODIOL
  14. VENCLEXTA [Concomitant]
     Active Substance: VENETOCLAX
  15. VIDAZA [Concomitant]
     Active Substance: AZACITIDINE
  16. ZINC [Concomitant]
     Active Substance: ZINC
  17. ZOFRAN [Concomitant]
     Active Substance: ONDANSETRON HYDROCHLORIDE

REACTIONS (3)
  - Chest pain [Not Recovered/Not Resolved]
  - Pyrexia [Not Recovered/Not Resolved]
  - Product use in unapproved indication [Unknown]

NARRATIVE: CASE EVENT DATE: 20250601
